FAERS Safety Report 5097218-4 (Version None)
Quarter: 2006Q3

REPORT INFORMATION
  Report Type: 
  Country: None (occurrence: None)
  Receive Date: 20060906
  Receipt Date: 20060825
  Transmission Date: 20061208
  Serious: Yes (Hospitalization)
  Sender: FDA-Public Use
  Company Number: BR-ROCHE-460775

PATIENT
  Age: 59 Year
  Sex: Female

DRUGS (5)
  1. CAPECITABINE [Suspect]
     Route: 048
     Dates: start: 20060223
  2. LAPATINIB [Suspect]
     Route: 048
     Dates: start: 20060223
  3. ZOLEDRONIC ACID [Concomitant]
  4. ALPRAZOLAM [Concomitant]
  5. OMEPRAZOLE [Concomitant]

REACTIONS (8)
  - ASCITES [None]
  - CANDIDIASIS [None]
  - CELLULITIS [None]
  - DERMATITIS INFECTED [None]
  - GASTRITIS [None]
  - PALMAR-PLANTAR ERYTHRODYSAESTHESIA SYNDROME [None]
  - PLEURAL EFFUSION [None]
  - PYOGENIC GRANULOMA [None]
